FAERS Safety Report 17200727 (Version 1)
Quarter: 2019Q4

REPORT INFORMATION
  Report Type: Spontaneous
  Country: FR (occurrence: FR)
  Receive Date: 20191226
  Receipt Date: 20191226
  Transmission Date: 20200122
  Serious: Yes (Hospitalization)
  Sender: FDA-Public Use
  Company Number: FR-TEVA-2019-FR-1156987

PATIENT
  Age: 15 Year
  Sex: Female

DRUGS (4)
  1. TIORFAN [Suspect]
     Active Substance: RACECADOTRIL
     Indication: SUICIDE ATTEMPT
     Dosage: 10 DOSAGE FORMS
     Route: 048
     Dates: start: 20190513, end: 20190513
  2. PARACETAMOL [Suspect]
     Active Substance: ACETAMINOPHEN
     Indication: SUICIDE ATTEMPT
     Dosage: 20000 MG
     Route: 048
     Dates: start: 20190513, end: 20190513
  3. VOGALENE [Suspect]
     Active Substance: METOPIMAZINE
     Indication: SUICIDE ATTEMPT
     Dosage: 300 MG
     Route: 048
     Dates: start: 20190513, end: 20190513
  4. IBUPROFENE [Suspect]
     Active Substance: IBUPROFEN
     Indication: SUICIDE ATTEMPT
     Dosage: 4000 MG
     Route: 048
     Dates: start: 20190513, end: 20190513

REACTIONS (4)
  - Intentional overdose [Recovered/Resolved]
  - Somnolence [Recovered/Resolved]
  - Poisoning deliberate [Recovered/Resolved]
  - Vomiting [Recovered/Resolved]

NARRATIVE: CASE EVENT DATE: 20190513
